FAERS Safety Report 16014811 (Version 3)
Quarter: 2019Q2

REPORT INFORMATION
  Report Type: Spontaneous
  Country: US (occurrence: US)
  Receive Date: 20190227
  Receipt Date: 20190412
  Transmission Date: 20190711
  Serious: Yes (Other)
  Sender: FDA-Public Use
  Company Number: PHEH2019US008372

PATIENT
  Sex: Male

DRUGS (2)
  1. LENVATINIB [Suspect]
     Active Substance: LENVATINIB
     Indication: RENAL CANCER
     Dosage: 18 MG, QD
     Route: 048
     Dates: start: 20190208
  2. AFINITOR [Suspect]
     Active Substance: EVEROLIMUS
     Indication: RENAL CANCER
     Dosage: UNK
     Route: 065

REACTIONS (12)
  - Hypothyroidism [Not Recovered/Not Resolved]
  - Hypertension [Recovering/Resolving]
  - Decreased appetite [Not Recovered/Not Resolved]
  - Memory impairment [Not Recovered/Not Resolved]
  - Neck pain [Recovering/Resolving]
  - Fatigue [Unknown]
  - Chest discomfort [Not Recovered/Not Resolved]
  - Vomiting [Recovering/Resolving]
  - Arthralgia [Unknown]
  - Myalgia [Unknown]
  - Chest pain [Not Recovered/Not Resolved]
  - Headache [Unknown]
